FAERS Safety Report 7409035 (Version 2)
Quarter: 2012Q4

REPORT INFORMATION
  Report Type: 
  Country: FR (occurrence: FR)
  Receive Date: 20100603
  Receipt Date: 20121218
  Transmission Date: 20130627
  Serious: Yes (Other)
  Sender: FDA-Public Use
  Company Number: FR-MERCK-1004FRA00057

PATIENT
  Age: 79 Year
  Sex: Female

DRUGS (12)
  1. JANUVIA [Suspect]
     Indication: TYPE 2 DIABETES MELLITUS
     Route: 048
     Dates: start: 2009, end: 2009
  2. JANUVIA [Suspect]
     Route: 048
     Dates: start: 2009, end: 2009
  3. INSULIN DETEMIR [Concomitant]
     Indication: TYPE 2 DIABETES MELLITUS
     Dosage: 30 IU, qd
  4. REPAGLINIDE [Concomitant]
     Indication: TYPE 2 DIABETES MELLITUS
     Dosage: 9 mg, qd
     Route: 048
  5. ATORVASTATIN [Concomitant]
     Dosage: 20 mg, qd
     Route: 048
  6. IRBESARTAN [Interacting]
     Dosage: 150 mg, qd
     Route: 048
  7. MK-9359 [Concomitant]
     Dosage: 100 mg, qd
     Route: 048
  8. ASPIRIN LYSINE [Concomitant]
     Dosage: 160 mg, qd
     Route: 048
  9. CLOPIDOGREL BISULFATE [Concomitant]
     Dosage: 75 mg, qd
     Route: 048
  10. HYDROXYZINE [Concomitant]
     Dosage: 50 mg, qd
     Route: 048
  11. LANSOPRAZOLE [Concomitant]
     Dosage: 15 mg, qd
     Route: 048
  12. CLOMIPRAMINE HYDROCHLORIDE [Concomitant]
     Dosage: 30 mg, qd
     Route: 048

REACTIONS (5)
  - Angioedema [Recovered/Resolved]
  - Angioedema [Unknown]
  - Dyspnoea [Unknown]
  - Drug interaction [Recovered/Resolved]
  - Drug interaction [Unknown]
